FAERS Safety Report 5113740-6 (Version None)
Quarter: 2006Q3

REPORT INFORMATION
  Report Type: 
  Country: None (occurrence: None)
  Receive Date: 20060921
  Receipt Date: 20060921
  Transmission Date: 20061208
  Serious: Yes (Hospitalization)
  Sender: FDA-Public Use
  Company Number: None

PATIENT
  Sex: Female

DRUGS (3)
  1. CARVEDILOL [Suspect]
     Indication: CARDIOMYOPATHY
     Dosage: 12.5MG PO BID
     Route: 048
     Dates: start: 20060321, end: 20060418
  2. DIGOXIN [Suspect]
     Indication: CARDIOMYOPATHY
     Dosage: 0.125MG PO DAILY
     Route: 048
     Dates: start: 20041130, end: 20060425
  3. FUROSEMIDE [Suspect]
     Indication: HYPERTENSION
     Dosage: 60MG AM 40MG PM
     Dates: start: 20060224, end: 20060425

REACTIONS (4)
  - ASTHENIA [None]
  - BLOOD PRESSURE DIASTOLIC DECREASED [None]
  - CHEST PAIN [None]
  - DIZZINESS [None]
